FAERS Safety Report 15959878 (Version 1)
Quarter: 2019Q1

REPORT INFORMATION
  Report Type: Spontaneous
  Country: US (occurrence: US)
  Receive Date: 20190214
  Receipt Date: 20190214
  Transmission Date: 20190417
  Serious: No
  Sender: FDA-Public Use
  Company Number: US-ROCHE-2206241

PATIENT
  Sex: Male

DRUGS (5)
  1. ALECENSA [Suspect]
     Active Substance: ALECTINIB HYDROCHLORIDE
     Indication: LUNG NEOPLASM MALIGNANT
     Dosage: SMALLER DOSE, ONGOING :YES
     Route: 048
  2. KEYTRUDA [Concomitant]
     Active Substance: PEMBROLIZUMAB
     Dosage: ONGOING: NO
     Route: 065
  3. ALECENSA [Suspect]
     Active Substance: ALECTINIB HYDROCHLORIDE
     Dosage: ONGOING: NO
     Route: 048
     Dates: start: 20180926
  4. ALIMTA [Concomitant]
     Active Substance: PEMETREXED DISODIUM
     Dosage: ONGOING: NO
     Route: 065
  5. CARBOPLATIN. [Concomitant]
     Active Substance: CARBOPLATIN
     Dosage: ONGOING: NO
     Route: 065

REACTIONS (1)
  - Rash [Unknown]
